FAERS Safety Report 7816907-9 (Version None)
Quarter: 2011Q4

REPORT INFORMATION
  Report Type: 
  Country: None (occurrence: None)
  Receive Date: 20111017
  Receipt Date: 20111012
  Transmission Date: 20120403
  Serious: No
  Sender: FDA-Public Use
  Company Number: US-TEVA-304967USA

PATIENT
  Age: 21 Year
  Sex: Female

DRUGS (2)
  1. PLAN B ONE-STEP [Suspect]
     Indication: POST COITAL CONTRACEPTION
     Dosage: 1.5 MILLIGRAM;
     Route: 048
     Dates: start: 20110922, end: 20110922
  2. PHENTERMINE [Concomitant]
     Indication: SUPPLEMENTATION THERAPY
     Dosage: 37.5 MILLIGRAM;
     Route: 048
     Dates: start: 20110801

REACTIONS (4)
  - MUSCLE SPASMS [None]
  - BREAST PAIN [None]
  - NAUSEA [None]
  - MENSTRUATION IRREGULAR [None]
